FAERS Safety Report 7408108-3 (Version None)
Quarter: 2011Q2

REPORT INFORMATION
  Report Type: 
  Country: None (occurrence: None)
  Receive Date: 20110408
  Receipt Date: 20110408
  Transmission Date: 20111010
  Serious: No
  Sender: FDA-Public Use
  Company Number: None

PATIENT
  Age: 35 Year
  Sex: Male
  Weight: 108.8633 kg

DRUGS (3)
  1. PREDNISONE 20MG APOTHECA [Suspect]
     Indication: EAR DISCOMFORT
     Dosage: 2 TABLETS DAILY BUCCAL
     Route: 002
     Dates: start: 20110321, end: 20110331
  2. PREDNISONE 20MG APOTHECA [Suspect]
     Indication: ALLERGIC SINUSITIS
     Dosage: 2 TABLETS DAILY BUCCAL
     Route: 002
     Dates: start: 20110321, end: 20110331
  3. AVELOX [Suspect]
     Indication: PNEUMONIA
     Dosage: 1 TABLET DAILY BUCCAL
     Route: 002
     Dates: start: 20110324, end: 20110402

REACTIONS (4)
  - TENDONITIS [None]
  - FATIGUE [None]
  - LOBAR PNEUMONIA [None]
  - VISION BLURRED [None]
